FAERS Safety Report 9825878 (Version 1)
Quarter: 2013Q4

REPORT INFORMATION
  Report Type: Spontaneous
  Country: US (occurrence: None)
  Receive Date: 20131028
  Receipt Date: 20131028
  Transmission Date: 20140711
  Serious: Yes (Other)
  Sender: FDA-Public Use
  Company Number: 2013US002014

PATIENT
  Age: 60 Year
  Sex: Male
  Weight: 69 kg

DRUGS (15)
  1. ICLUSIG [Suspect]
     Indication: CHRONIC MYELOID LEUKAEMIA
     Route: 048
     Dates: start: 20130603, end: 20130627
  2. RANTIDINE(RANITIDINE HYDROCHLORIDE) [Concomitant]
  3. BYSTOLIC(NEBIVOLOL HYDROCHLORIDE) [Concomitant]
  4. ULORIC(FEBUXOSTAT) [Concomitant]
  5. ENALAPRIL(ENAPRIL) [Concomitant]
  6. CYMBALTA(DULOXETINE HYDROCHLORIDE) [Concomitant]
  7. HYDROXYUREA(HYDROXYUREA) [Concomitant]
  8. ALLOPURINOL(ALLOPURINOL) [Concomitant]
  9. NIACIN(NIACIN) [Concomitant]
  10. COLCRY(COLCHICINE) [Concomitant]
  11. SIMVASTATIN(SIMVASTATIN) [Concomitant]
  12. TIZANIDINE(TIZANIDINE) [Concomitant]
  13. HYDROCODONE(HYDROCODONE) [Concomitant]
  14. CHOLESTYRAMIN(CHOLESTRYRAMINE) [Concomitant]
  15. RANITIDINE(RANITIDINE HYDROCHLORIDE) [Concomitant]

REACTIONS (5)
  - Platelet count decreased [None]
  - Skin lesion [None]
  - Bone pain [None]
  - Myalgia [None]
  - Rash [None]
